FAERS Safety Report 4626127-7 (Version None)
Quarter: 2005Q1

REPORT INFORMATION
  Report Type: 
  Country: None (occurrence: None)
  Receive Date: 20050330
  Receipt Date: 20050314
  Transmission Date: 20050727
  Serious: Yes (Other)
  Sender: FDA-Public Use
  Company Number: US_0503114266

PATIENT
  Age: 60 Year
  Sex: Female
  Weight: 127 kg

DRUGS (1)
  1. HUMATROPE [Suspect]
     Dosage: 0 .5 MG
     Dates: start: 20010101

REACTIONS (4)
  - IMPAIRED HEALING [None]
  - LOWER LIMB FRACTURE [None]
  - OSTEOPOROSIS [None]
  - PHARMACEUTICAL PRODUCT COMPLAINT [None]
